FAERS Safety Report 16683634 (Version 1)
Quarter: 2019Q3

REPORT INFORMATION
  Report Type: Spontaneous
  Country: US (occurrence: US)
  Receive Date: 20190808
  Receipt Date: 20190808
  Transmission Date: 20191004
  Serious: No
  Sender: FDA-Public Use
  Company Number: US-ALLERGAN-1839777US

PATIENT
  Age: 60 Year
  Sex: Male
  Weight: 117.91 kg

DRUGS (1)
  1. ANDRODERM [Suspect]
     Active Substance: TESTOSTERONE
     Indication: BLOOD TESTOSTERONE DECREASED
     Dosage: 1 DF, QD
     Route: 062
     Dates: start: 20180702, end: 20180811

REACTIONS (3)
  - Application site pruritus [Recovering/Resolving]
  - Application site vesicles [Not Recovered/Not Resolved]
  - Application site reaction [Unknown]

NARRATIVE: CASE EVENT DATE: 20180702
